FAERS Safety Report 20091408 (Version 1)
Quarter: 2021Q4

REPORT INFORMATION
  Report Type: Spontaneous
  Country: US (occurrence: US)
  Receive Date: 20211119
  Receipt Date: 20211119
  Transmission Date: 20220303
  Serious: No
  Sender: FDA-Public Use
  Company Number: US-TARO-2021TAR00974

PATIENT

DRUGS (1)
  1. MUPIROCIN [Suspect]
     Active Substance: MUPIROCIN
     Indication: Infection
     Dosage: CONTAINER SIZE: 30 GRAMS, TID
     Route: 065

REACTIONS (1)
  - Drug ineffective [Unknown]
